FAERS Safety Report 21016178 (Version 1)
Quarter: 2022Q2

REPORT INFORMATION
  Report Type: Spontaneous
  Country: US (occurrence: US)
  Receive Date: 20220628
  Receipt Date: 20220628
  Transmission Date: 20220720
  Serious: Yes (Other)
  Sender: FDA-Public Use
  Company Number: US-AMGEN-USASP2022107187

PATIENT
  Age: 14 Year
  Sex: Female

DRUGS (2)
  1. BEVACIZUMAB [Suspect]
     Active Substance: BEVACIZUMAB
     Indication: Retinal vein occlusion
     Route: 065
  2. RIVAROXABAN [Concomitant]
     Active Substance: RIVAROXABAN
     Indication: Prophylaxis

REACTIONS (3)
  - Retinal vein occlusion [Unknown]
  - Drug ineffective for unapproved indication [Unknown]
  - Off label use [Unknown]
